FAERS Safety Report 8008429-X (Version None)
Quarter: 2011Q4

REPORT INFORMATION
  Report Type: 
  Country: None (occurrence: None)
  Receive Date: 20111227
  Receipt Date: 20111220
  Transmission Date: 20120403
  Serious: Yes (Hospitalization)
  Sender: FDA-Public Use
  Company Number: FR-ROCHE-1023853

PATIENT
  Sex: Male
  Weight: 42 kg

DRUGS (4)
  1. INDOMETHACIN [Concomitant]
     Route: 048
     Dates: start: 20100420, end: 20111120
  2. ACTEMRA [Suspect]
     Indication: JUVENILE ARTHRITIS
     Route: 042
     Dates: start: 20101122, end: 20111219
  3. PREDNISONE [Concomitant]
     Indication: JUVENILE ARTHRITIS
     Route: 048
     Dates: start: 20100420
  4. CANAKINUMAB [Concomitant]

REACTIONS (1)
  - COLITIS ULCERATIVE [None]
